FAERS Safety Report 10879334 (Version 1)
Quarter: 2015Q1

REPORT INFORMATION
  Report Type: Spontaneous
  Country: FR (occurrence: FR)
  Receive Date: 20150302
  Receipt Date: 20150302
  Transmission Date: 20150721
  Serious: Yes (Other)
  Sender: FDA-Public Use
  Company Number: PHHY2015FR021911

PATIENT
  Age: 52 Year
  Sex: Female
  Weight: 35 kg

DRUGS (1)
  1. PARACETAMOL [Suspect]
     Active Substance: ACETAMINOPHEN
     Indication: PRODUCT USED FOR UNKNOWN INDICATION
     Dosage: 1 G, QD
     Route: 042

REACTIONS (1)
  - Hepatitis fulminant [Recovering/Resolving]
